FAERS Safety Report 4433006-7 (Version None)
Quarter: 2004Q3

REPORT INFORMATION
  Report Type: 
  Country: None (occurrence: None)
  Receive Date: 20040726
  Receipt Date: 20040511
  Transmission Date: 20050211
  Serious: No
  Sender: FDA-Public Use
  Company Number: USA040155866

PATIENT
  Age: 90 Year
  Sex: Female
  Weight: 32 kg

DRUGS (8)
  1. FORTEO [Suspect]
     Indication: OSTEOPOROSIS
     Dosage: 20 UG/ 1 DAY
     Dates: start: 20030731, end: 20040301
  2. LIPITOR [Concomitant]
  3. CARDIZEM [Concomitant]
  4. IMDUR [Concomitant]
  5. CALCIUM [Concomitant]
  6. VITAMIN D [Concomitant]
  7. NITROGLYCERIN [Concomitant]
  8. LOMOTIL [Concomitant]

REACTIONS (7)
  - DIFFICULTY IN WALKING [None]
  - DIZZINESS [None]
  - GENERAL PHYSICAL HEALTH DETERIORATION [None]
  - INJECTION SITE PAIN [None]
  - MUSCLE CRAMP [None]
  - PEDAL PULSE ABNORMAL [None]
  - PERIPHERAL COLDNESS [None]
